FAERS Safety Report 18913470 (Version 1)
Quarter: 2021Q1

REPORT INFORMATION
  Report Type: Spontaneous
  Country: US (occurrence: US)
  Receive Date: 20210218
  Receipt Date: 20210218
  Transmission Date: 20210420
  Serious: Yes (Other)
  Sender: FDA-Public Use
  Company Number: US-COOPERSURGICAL, INC.-US-2021CPS000371

PATIENT
  Age: 22 Year
  Sex: Female
  Weight: 82.99 kg

DRUGS (1)
  1. PARAGARD T 380A [Suspect]
     Active Substance: COPPER
     Indication: CONTRACEPTION
     Dosage: UNK
     Route: 015
     Dates: start: 2018, end: 20210201

REACTIONS (5)
  - Metrorrhagia [Unknown]
  - Menorrhagia [Unknown]
  - Embedded device [Recovered/Resolved]
  - Ovarian cyst [Unknown]
  - Device dislocation [Recovered/Resolved]

NARRATIVE: CASE EVENT DATE: 20210201
